FAERS Safety Report 18793971 (Version 2)
Quarter: 2021Q3

REPORT INFORMATION
  Report Type: Report from Study
  Country: CA (occurrence: CA)
  Receive Date: 20210127
  Receipt Date: 20210721
  Transmission Date: 20211014
  Serious: Yes (Other)
  Sender: FDA-Public Use
  Company Number: CA-UCBSA-2021002224

PATIENT
  Age: 57 Year
  Sex: Female

DRUGS (2)
  1. CERTOLIZUMAB PEGOL AUTOCLICKS [Suspect]
     Active Substance: CERTOLIZUMAB PEGOL
     Dosage: 200 MILLIGRAM, EV 2 WEEKS(QOW)
     Route: 058
     Dates: start: 2010
  2. CERTOLIZUMAB PEGOL AUTOCLICKS [Suspect]
     Active Substance: CERTOLIZUMAB PEGOL
     Indication: RHEUMATOID ARTHRITIS
     Dosage: 400 MILLIGRAM, EV 2 WEEKS(QOW)
     Route: 058
     Dates: start: 20100813, end: 2010

REACTIONS (6)
  - Limb injury [Not Recovered/Not Resolved]
  - Exposure to SARS-CoV-2 [Unknown]
  - Fall [Not Recovered/Not Resolved]
  - Fractured coccyx [Not Recovered/Not Resolved]
  - SARS-CoV-2 test negative [Unknown]
  - Quarantine [Unknown]

NARRATIVE: CASE EVENT DATE: 2020
